FAERS Safety Report 8470156-2 (Version None)
Quarter: 2012Q2

REPORT INFORMATION
  Report Type: 
  Country: None (occurrence: None)
  Receive Date: 20120627
  Receipt Date: 20120620
  Transmission Date: 20120825
  Serious: Yes (Life-Threatening, Other)
  Sender: FDA-Public Use
  Company Number: JP-SP-2012-05753

PATIENT
  Age: 62 Year
  Sex: Male

DRUGS (1)
  1. IMMUCYST [Suspect]
     Indication: BLADDER CANCER
     Route: 043
     Dates: start: 20120515

REACTIONS (3)
  - SPLENIC ABSCESS [None]
  - PYREXIA [None]
  - WHITE BLOOD CELL COUNT DECREASED [None]
